FAERS Safety Report 9432587 (Version 5)
Quarter: 2014Q1

REPORT INFORMATION
  Report Type: Spontaneous
  Country: TW (occurrence: TW)
  Receive Date: 20130731
  Receipt Date: 20140115
  Transmission Date: 20141002
  Serious: Yes (Hospitalization)
  Sender: FDA-Public Use
  Company Number: TW-PFIZER INC-2013217384

PATIENT
  Age: 52 Year
  Sex: Male

DRUGS (2)
  1. SUTENT [Suspect]
     Indication: GASTROINTESTINAL STROMAL TUMOUR
     Dosage: 37.5 MG, ONCE DAILY
     Dates: start: 20130701, end: 20130722
  2. SUTENT [Suspect]
     Dosage: 3 DF, QD
     Route: 048
     Dates: start: 20130730, end: 20140108

REACTIONS (7)
  - Abdominal distension [Unknown]
  - Vomiting [Unknown]
  - Gastric ulcer [Recovered/Resolved]
  - Dry skin [Unknown]
  - Skin exfoliation [Unknown]
  - Disease recurrence [Unknown]
  - Gastrointestinal stromal tumour [Unknown]
